FAERS Safety Report 5358798-4 (Version None)
Quarter: 2007Q2

REPORT INFORMATION
  Report Type: 
  Country: None (occurrence: None)
  Receive Date: 20070530
  Receipt Date: 20070206
  Transmission Date: 20071010
  Serious: No
  Sender: FDA-Public Use
  Company Number: 2007PV029737

PATIENT
  Sex: Male

DRUGS (4)
  1. BYETTA [Suspect]
     Indication: DIABETES MELLITUS NON-INSULIN-DEPENDENT
     Dosage: 5 MCG; BID, SC
     Route: 058
     Dates: start: 20070101, end: 20070101
  2. PEPTO-BISMOL [Suspect]
     Indication: NAUSEA
     Dates: start: 20070101
  3. NOVOLOG [Concomitant]
  4. CORTEF [Concomitant]

REACTIONS (2)
  - MELAENA [None]
  - NAUSEA [None]
